FAERS Safety Report 5496452-9 (Version None)
Quarter: 2007Q4

REPORT INFORMATION
  Report Type: 
  Country: None (occurrence: None)
  Receive Date: 20071025
  Receipt Date: 20071011
  Transmission Date: 20080405
  Serious: Yes (Other)
  Sender: FDA-Public Use
  Company Number: US-ELI_LILLY_AND_COMPANY-US200710003254

PATIENT
  Sex: Female

DRUGS (2)
  1. ALIMTA [Suspect]
     Indication: NON-SMALL CELL LUNG CANCER
     Dosage: 500 D/F, UNK
     Dates: start: 20070816
  2. ALIMTA [Suspect]
     Dosage: 500 D/F, UNK
     Dates: start: 20071011

REACTIONS (1)
  - DEAFNESS [None]
